FAERS Safety Report 9922124 (Version 1)
Quarter: 2014Q1

REPORT INFORMATION
  Report Type: Spontaneous
  Country: US (occurrence: None)
  Receive Date: 20140224
  Receipt Date: 20140224
  Transmission Date: 20141002
  Serious: Yes (Death, Life-Threatening, Hospitalization, Disabling)
  Sender: FDA-Public Use
  Company Number: None

PATIENT
  Age: 90 Year
  Sex: Female
  Weight: 54.43 kg

DRUGS (1)
  1. XARELTO [Suspect]
     Indication: THROMBOSIS
     Dosage: 30 MGS A DAY 2 PILLS TWICE DAILY
     Route: 048
     Dates: start: 20130826, end: 20130926

REACTIONS (4)
  - Gastric haemorrhage [None]
  - Eye haemorrhage [None]
  - Blindness [None]
  - Cerebrovascular accident [None]
